FAERS Safety Report 18584029 (Version 1)
Quarter: 2020Q4

REPORT INFORMATION
  Report Type: Spontaneous
  Country: US (occurrence: US)
  Receive Date: 20201207
  Receipt Date: 20201207
  Transmission Date: 20210114
  Serious: Yes (Death, Other)
  Sender: FDA-Public Use
  Company Number: US-SA-2020SA348232

PATIENT

DRUGS (1)
  1. ZANTAC [Suspect]
     Active Substance: RANITIDINE HYDROCHLORIDE
     Dosage: UNK
     Dates: start: 199911, end: 201903

REACTIONS (3)
  - Hepatic cancer [Fatal]
  - Prostate cancer [Fatal]
  - Colorectal cancer [Fatal]

NARRATIVE: CASE EVENT DATE: 20070101
